FAERS Safety Report 8499230-1 (Version None)
Quarter: 2012Q3

REPORT INFORMATION
  Report Type: 
  Country: None (occurrence: None)
  Receive Date: 20120710
  Receipt Date: 20120701
  Transmission Date: 20120928
  Serious: Yes (Other)
  Sender: FDA-Public Use
  Company Number: PHHY2012AU057773

PATIENT
  Sex: Male

DRUGS (3)
  1. SANDOSTATIN LAR [Suspect]
     Dosage: 30 MG, UNK
     Route: 030
     Dates: start: 20120701
  2. ANTIBIOTICS [Concomitant]
  3. SANDOSTATIN LAR [Suspect]
     Indication: ACROMEGALY
     Dosage: 20 MG, UNK
     Route: 030

REACTIONS (3)
  - INFLUENZA [None]
  - NEOPLASM MALIGNANT [None]
  - LIVER FUNCTION TEST ABNORMAL [None]
